FAERS Safety Report 18350504 (Version 1)
Quarter: 2020Q4

REPORT INFORMATION
  Report Type: Spontaneous
  Country: CA (occurrence: CA)
  Receive Date: 20201006
  Receipt Date: 20201006
  Transmission Date: 20210114
  Serious: Yes (Death, Hospitalization)
  Sender: FDA-Public Use
  Company Number: CA-JNJFOC-A-US2017-160537

PATIENT
  Age: 61 Year
  Sex: Female
  Weight: 81.63 kg

DRUGS (6)
  1. HYDROMORPHONE [Concomitant]
     Active Substance: HYDROMORPHONE
  2. RAMIPRIL. [Concomitant]
     Active Substance: RAMIPRIL
  3. OPSUMIT [Suspect]
     Active Substance: MACITENTAN
     Indication: PULMONARY ARTERIAL HYPERTENSION
     Dosage: 10 MG, UNK
     Route: 048
     Dates: start: 20170306
  4. AMLODIPINE [Concomitant]
     Active Substance: AMLODIPINE BESYLATE
  5. IRON [Concomitant]
     Active Substance: IRON
  6. PANTOPRAZOLE [Concomitant]
     Active Substance: PANTOPRAZOLE

REACTIONS (6)
  - Hospice care [Unknown]
  - Death [Fatal]
  - Gastrointestinal haemorrhage [Not Recovered/Not Resolved]
  - Malaise [Unknown]
  - Haematemesis [Not Recovered/Not Resolved]
  - Epistaxis [Not Recovered/Not Resolved]
